FAERS Safety Report 12969880 (Version 2)
Quarter: 2017Q1

REPORT INFORMATION
  Report Type: Spontaneous
  Country: US (occurrence: US)
  Receive Date: 20161123
  Receipt Date: 20170206
  Transmission Date: 20170428
  Serious: Yes (Hospitalization)
  Sender: FDA-Public Use
  Company Number: US-MALLINCKRODT-T201605581

PATIENT
  Age: 44 Year
  Sex: Male
  Weight: 87 kg

DRUGS (10)
  1. FENOFIBRIC ACID. [Concomitant]
     Active Substance: FENOFIBRIC ACID
  2. H.P. ACTHAR [Suspect]
     Active Substance: CORTICOTROPIN
     Indication: PROTEINURIA
     Dosage: 80 UNITS/ 1ML , 2 TIMES PER WEEK
     Route: 058
     Dates: start: 201603, end: 2016
  3. LISINOPRIL. [Concomitant]
     Active Substance: LISINOPRIL
  4. MULTIVITAMIN [Concomitant]
     Active Substance: VITAMINS
  5. LASIX [Concomitant]
     Active Substance: FUROSEMIDE
  6. H.P. ACTHAR [Suspect]
     Active Substance: CORTICOTROPIN
     Indication: BILIRUBINURIA
  7. H.P. ACTHAR [Suspect]
     Active Substance: CORTICOTROPIN
     Indication: GLOMERULONEPHRITIS
     Dosage: 40UNITS TWICE PER WEEK, (MON+THURS)
     Route: 058
     Dates: start: 201602, end: 2016
  8. H.P. ACTHAR [Suspect]
     Active Substance: CORTICOTROPIN
     Indication: ALBUMINURIA
     Dosage: 40 UNITS /0.5 ML, TWICE WEEKLY
     Route: 058
     Dates: start: 20160820
  9. LIPITOR [Concomitant]
     Active Substance: ATORVASTATIN CALCIUM
  10. CITRACAL PLUS D [Concomitant]

REACTIONS (4)
  - Headache [Unknown]
  - Migraine [Not Recovered/Not Resolved]
  - Neurological examination abnormal [Unknown]
  - Hypertension [Unknown]

NARRATIVE: CASE EVENT DATE: 2016
